FAERS Safety Report 5411273-0 (Version None)
Quarter: 2007Q3

REPORT INFORMATION
  Report Type: 
  Country: None (occurrence: None)
  Receive Date: 20070810
  Receipt Date: 20070731
  Transmission Date: 20080115
  Serious: Yes (Other)
  Sender: FDA-Public Use
  Company Number: FR-ROCHE-504396

PATIENT
  Age: 77 Year
  Sex: Female
  Weight: 62 kg

DRUGS (3)
  1. BONIVA [Suspect]
     Indication: OSTEOPOROSIS
     Route: 048
     Dates: start: 20070502
  2. ELISOR [Interacting]
     Dosage: DOSING REGIMEN REPORTED AS 1 DOSE. DRUG REPORTED AS ELISOR 20
     Route: 065
     Dates: start: 20040201
  3. COTAREG [Interacting]
     Dosage: DOSAGE REGIMEN REPORTED AS 1 DOSE. DRUG REPORTED AS COTAREG 80.
     Route: 065
     Dates: start: 20031201

REACTIONS (4)
  - BRONCHOSPASM [None]
  - DRUG INTERACTION [None]
  - TONGUE OEDEMA [None]
  - URTICARIA [None]
